FAERS Safety Report 17969944 (Version 1)
Quarter: 2020Q3

REPORT INFORMATION
  Report Type: Spontaneous
  Country: CA (occurrence: CA)
  Receive Date: 20200701
  Receipt Date: 20200701
  Transmission Date: 20201103
  Serious: No
  Sender: FDA-Public Use
  Company Number: NVSC2020CA184993

PATIENT
  Age: 3 Year

DRUGS (2)
  1. TERBINAFINE. [Suspect]
     Active Substance: TERBINAFINE
     Indication: TINEA PEDIS
     Dosage: 1 % CREAM
     Route: 061
  2. HYDROCORTISONE. [Suspect]
     Active Substance: HYDROCORTISONE
     Indication: TINEA PEDIS
     Dosage: 1 % OINTMENT
     Route: 061

REACTIONS (2)
  - Product use in unapproved indication [Unknown]
  - Drug ineffective [Unknown]
